FAERS Safety Report 16663961 (Version 1)
Quarter: 2019Q3

REPORT INFORMATION
  Report Type: Spontaneous
  Country: IT (occurrence: IT)
  Receive Date: 20190802
  Receipt Date: 20190802
  Transmission Date: 20191004
  Serious: Yes (Other)
  Sender: FDA-Public Use
  Company Number: IT-SA-2019SA204120

PATIENT
  Age: 57 Year
  Sex: Female

DRUGS (2)
  1. COAPROVEL [Suspect]
     Active Substance: HYDROCHLOROTHIAZIDE\IRBESARTAN
     Indication: HYPERTENSION
     Dosage: 312.5 MG, QD
     Route: 048
     Dates: start: 20181021
  2. MESTINON [Concomitant]
     Active Substance: PYRIDOSTIGMINE BROMIDE
     Dosage: UNK UNK, UNK

REACTIONS (3)
  - Blood pressure increased [Recovering/Resolving]
  - Vertigo [Recovering/Resolving]
  - Therapy non-responder [Unknown]

NARRATIVE: CASE EVENT DATE: 20190214
